FAERS Safety Report 18207150 (Version 9)
Quarter: 2021Q1

REPORT INFORMATION
  Report Type: Spontaneous
  Country: US (occurrence: US)
  Receive Date: 20200828
  Receipt Date: 20210111
  Transmission Date: 20210419
  Serious: Yes (Other)
  Sender: FDA-Public Use
  Company Number: US-GLAXOSMITHKLINE-US2020AMR167181

PATIENT
  Sex: Female

DRUGS (5)
  1. ZEJULA [Suspect]
     Active Substance: NIRAPARIB
     Dosage: 200 MG, QD
     Route: 048
     Dates: start: 20200813
  2. ZEJULA [Suspect]
     Active Substance: NIRAPARIB
     Dosage: 100 MG, QD
     Route: 048
     Dates: start: 20200916
  3. ZEJULA [Suspect]
     Active Substance: NIRAPARIB
     Dosage: 200 MG, QD
     Route: 048
  4. ZEJULA [Suspect]
     Active Substance: NIRAPARIB
     Dosage: 200 MG, QD
     Route: 048
  5. ZEJULA [Suspect]
     Active Substance: NIRAPARIB
     Indication: OVARIAN CANCER
     Dosage: 200 MG, QD
     Route: 048
     Dates: start: 20200731

REACTIONS (18)
  - Blood pressure increased [Unknown]
  - Muscular weakness [Unknown]
  - Arthralgia [Recovered/Resolved]
  - Upper-airway cough syndrome [Unknown]
  - Back pain [Recovered/Resolved]
  - Neuropathy peripheral [Not Recovered/Not Resolved]
  - Carbohydrate antigen 125 increased [Not Recovered/Not Resolved]
  - Glossodynia [Unknown]
  - Constipation [Unknown]
  - Product dose omission in error [Unknown]
  - Fall [Unknown]
  - Ligament sprain [Unknown]
  - Rhinorrhoea [Not Recovered/Not Resolved]
  - Red blood cell count decreased [Unknown]
  - Muscle spasms [Unknown]
  - Platelet count decreased [Unknown]
  - Oropharyngeal pain [Unknown]
  - Tongue dry [Unknown]
